FAERS Safety Report 8077235-2 (Version None)
Quarter: 2012Q1

REPORT INFORMATION
  Report Type: 
  Country: None (occurrence: None)
  Receive Date: 20120127
  Receipt Date: 20120119
  Transmission Date: 20120608
  Serious: Yes (Hospitalization, Other)
  Sender: FDA-Public Use
  Company Number: US-BAYER-2011-055454

PATIENT
  Age: 37 Year
  Sex: Female
  Weight: 109 kg

DRUGS (7)
  1. LISINOPRIL AND HYDROCHLOROTHIAZIDE [Concomitant]
  2. DEPO-PROVERA [Concomitant]
  3. NEURONTIN [Concomitant]
  4. YAZ [Suspect]
     Indication: PREMENSTRUAL SYNDROME
     Dosage: UNK
     Dates: start: 20070101, end: 20090801
  5. MIRAPEX [Concomitant]
  6. PHENERGAN [Concomitant]
  7. LIPITOR [Concomitant]
     Dosage: UNK
     Dates: start: 20090508, end: 20091013

REACTIONS (9)
  - MENTAL DISORDER [None]
  - PULMONARY EMBOLISM [None]
  - DEEP VEIN THROMBOSIS [None]
  - GALLBLADDER DISORDER [None]
  - CHOLECYSTITIS CHRONIC [None]
  - CEREBROVASCULAR ACCIDENT [None]
  - PAIN [None]
  - FEAR [None]
  - MYOCARDIAL INFARCTION [None]
